FAERS Safety Report 25590933 (Version 1)
Quarter: 2025Q3

REPORT INFORMATION
  Report Type: Spontaneous
  Country: US (occurrence: None)
  Receive Date: 20250722
  Receipt Date: 20250722
  Transmission Date: 20251021
  Serious: Yes (Other)
  Sender: FDA-CTU
  Company Number: None

PATIENT
  Age: 64 Year
  Sex: Female
  Weight: 82.8 kg

DRUGS (3)
  1. JARDIANCE [Suspect]
     Active Substance: EMPAGLIFLOZIN
     Indication: Diabetes mellitus
  2. B12 [Concomitant]
  3. LISINOPRIL [Suspect]
     Active Substance: LISINOPRIL

REACTIONS (7)
  - Vision blurred [None]
  - Vitreous floaters [None]
  - Dizziness [None]
  - Illusion [None]
  - Epistaxis [None]
  - Eyelid ptosis [None]
  - Pain in extremity [None]

NARRATIVE: CASE EVENT DATE: 20250721
